FAERS Safety Report 10643114 (Version 3)
Quarter: 2015Q1

REPORT INFORMATION
  Report Type: Report from Study
  Country: DE (occurrence: DE)
  Receive Date: 20141210
  Receipt Date: 20150203
  Transmission Date: 20150720
  Serious: Yes (Other)
  Sender: FDA-Public Use
  Company Number: DE-ABBVIE-14K-062-1315407-00

PATIENT
  Age: 38 Year
  Sex: Female

DRUGS (2)
  1. HUMIRA [Suspect]
     Active Substance: ADALIMUMAB
     Indication: CROHN^S DISEASE
     Route: 058
     Dates: start: 20130228, end: 20140101
  2. REMICADE [Concomitant]
     Active Substance: INFLIXIMAB
     Indication: PRODUCT USED FOR UNKNOWN INDICATION

REACTIONS (4)
  - Large intestinal stenosis [Recovered/Resolved]
  - Anal fissure excision [Recovered/Resolved]
  - Crohn^s disease [Unknown]
  - Colonic fistula [Unknown]

NARRATIVE: CASE EVENT DATE: 20140108
